FAERS Safety Report 7030126-8 (Version None)
Quarter: 2010Q4

REPORT INFORMATION
  Report Type: 
  Country: None (occurrence: None)
  Receive Date: 20101006
  Receipt Date: 20100924
  Transmission Date: 20110411
  Serious: Yes (Hospitalization)
  Sender: FDA-Public Use
  Company Number: ES-PFIZER INC-2010073196

PATIENT
  Age: 74 Year
  Sex: Male
  Weight: 83 kg

DRUGS (16)
  1. *PREDNISONE [Suspect]
     Indication: PROSTATE CANCER
     Dosage: 10 MG, 2X/DAY
     Route: 048
     Dates: start: 20090723, end: 20100610
  2. BLINDED *NO SUBJECT DRUG [Suspect]
     Indication: PROSTATE CANCER
     Dosage: 25 MG, 1X/DAY
     Route: 048
     Dates: start: 20090723, end: 20100610
  3. BLINDED *PLACEBO [Suspect]
     Indication: PROSTATE CANCER
     Dosage: 25 MG, 1X/DAY
     Route: 048
     Dates: start: 20090723, end: 20100610
  4. SUNITINIB MALATE [Suspect]
     Indication: PROSTATE CANCER
     Dosage: 25 MG, 1X/DAY
     Route: 048
     Dates: start: 20090723, end: 20100610
  5. IBUPROFEN [Concomitant]
     Indication: PAIN
     Dosage: 600 MG, 3X/DAY
  6. OMEPRAZOLE [Concomitant]
     Indication: PROPHYLAXIS
     Dosage: 20 MG, 2X/DAY
  7. DIAZEPAM [Concomitant]
     Indication: ANXIETY
     Dosage: 10 MG, 1X/DAY
  8. ROHIPNOL [Concomitant]
     Indication: INSOMNIA
     Dosage: 1 MG, 1X/DAY
  9. SERTRALINE [Concomitant]
     Indication: ANTIDEPRESSANT THERAPY
     Dosage: 50 MG, 1X/DAY
  10. ENALAPRIL [Concomitant]
     Indication: HYPERTENSION
     Dosage: 5 MG, 1X/DAY
  11. ALLOPURINOL [Concomitant]
     Indication: HYPERURICAEMIA
     Dosage: 100 MG, 1X/DAY
  12. METFORMIN HCL [Concomitant]
     Indication: DIABETES MELLITUS
     Dosage: 850 MG, 2X/DAY
  13. LYRICA [Concomitant]
     Indication: PAIN
     Dosage: 75 MG, 1X/DAY
  14. DACORTIN [Concomitant]
     Dosage: 5 MG, 2X/DAY
  15. ASPIRIN [Concomitant]
     Indication: MYOCARDIAL ISCHAEMIA
     Dosage: 100 MG, 1X/DAY
  16. MONUROL [Concomitant]
     Indication: BLADDER CATHETERISATION
     Dosage: 3 G, UNK

REACTIONS (1)
  - INTESTINAL HAEMORRHAGE [None]
